FAERS Safety Report 5431235-7 (Version None)
Quarter: 2007Q3

REPORT INFORMATION
  Report Type: 
  Country: None (occurrence: None)
  Receive Date: 20070830
  Receipt Date: 20070409
  Transmission Date: 20080115
  Serious: No
  Sender: FDA-Public Use
  Company Number: A0646187A

PATIENT
  Age: 55 Year
  Sex: Female

DRUGS (4)
  1. WELLBUTRIN [Suspect]
     Indication: DEPRESSION
     Dosage: 300MG PER DAY
     Route: 048
     Dates: end: 20070201
  2. BUPROPION HYDROCHLORIDE [Suspect]
     Indication: DEPRESSION
     Dosage: 300MG PER DAY
     Route: 048
     Dates: start: 20070201
  3. VIVELLE [Concomitant]
  4. ALCOHOL [Concomitant]

REACTIONS (4)
  - AGITATION [None]
  - AMNESIA [None]
  - DEPRESSED MOOD [None]
  - NERVOUSNESS [None]
